FAERS Safety Report 22060833 (Version 8)
Quarter: 2023Q2

REPORT INFORMATION
  Report Type: Report from Study
  Country: BR (occurrence: BR)
  Receive Date: 20230303
  Receipt Date: 20230511
  Transmission Date: 20230722
  Serious: Yes (Hospitalization, Other)
  Sender: FDA-Public Use
  Company Number: BR-JNJFOC-20230245018

PATIENT
  Age: 39 Year
  Sex: Female
  Weight: 50.4 kg

DRUGS (8)
  1. AMIVANTAMAB [Suspect]
     Active Substance: AMIVANTAMAB
     Indication: Non-small cell lung cancer
     Dosage: DOSE ALSO REPORTED AS 10 ML, 25 R VIAL?MOST RECENT DOSE 28-FEB-2023
     Route: 058
     Dates: start: 20230222
  2. DIPYRONE [Concomitant]
     Active Substance: DIPYRONE
     Indication: Musculoskeletal pain
     Route: 048
     Dates: start: 20230117, end: 20230301
  3. DIPYRONE [Concomitant]
     Active Substance: DIPYRONE
     Indication: Neck pain
  4. DIPYRONE [Concomitant]
     Active Substance: DIPYRONE
     Indication: Musculoskeletal chest pain
  5. CODEINE [Concomitant]
     Active Substance: CODEINE
     Indication: Musculoskeletal chest pain
     Route: 048
     Dates: start: 20230117, end: 20230301
  6. CODEINE [Concomitant]
     Active Substance: CODEINE
     Indication: Neck pain
  7. CODEINE [Concomitant]
     Active Substance: CODEINE
     Indication: Musculoskeletal chest pain
  8. FOLIC ACID [Concomitant]
     Active Substance: FOLIC ACID
     Indication: Prophylaxis
     Route: 048
     Dates: start: 20230117, end: 20230227

REACTIONS (3)
  - Administration related reaction [Recovered/Resolved]
  - Oedema peripheral [Recovered/Resolved]
  - Rash [Recovered/Resolved]

NARRATIVE: CASE EVENT DATE: 20230201
